FAERS Safety Report 25881965 (Version 5)
Quarter: 2025Q4

REPORT INFORMATION
  Report Type: Report from Study
  Country: EU (occurrence: EU)
  Receive Date: 20251005
  Receipt Date: 20251129
  Transmission Date: 20260118
  Serious: Yes (Hospitalization, Other)
  Sender: ABBVIE
  Company Number: EU-ABBVIE-6487330

PATIENT
  Age: 66 Year
  Sex: Male

DRUGS (1)
  1. FOSCARBIDOPA\FOSLEVODOPA [Suspect]
     Active Substance: FOSCARBIDOPA\FOSLEVODOPA
     Indication: Parkinson^s disease
     Dosage: BASAL DOSE IN MORNINGS AND HIGH DOSE IN AFTERNOONS
     Route: 058
     Dates: start: 20240507

REACTIONS (5)
  - Hepatic cancer [Recovering/Resolving]
  - Bile duct cancer [Recovering/Resolving]
  - Weight decreased [Unknown]
  - Pyrexia [Recovered/Resolved]
  - Abdominal pain [Recovering/Resolving]

NARRATIVE: CASE EVENT DATE: 20250101
